FAERS Safety Report 13734563 (Version 2)
Quarter: 2017Q3

REPORT INFORMATION
  Report Type: Spontaneous
  Country: IT (occurrence: IT)
  Receive Date: 20170709
  Receipt Date: 20170711
  Transmission Date: 20171127
  Serious: Yes (Life-Threatening, Hospitalization, Disabling)
  Sender: FDA-Public Use
  Company Number: PHHY2017IT098495

PATIENT
  Age: 51 Year
  Sex: Male

DRUGS (6)
  1. TACHIDOL [Concomitant]
     Active Substance: ACETAMINOPHEN\CODEINE PHOSPHATE
     Indication: PRODUCT USED FOR UNKNOWN INDICATION
     Dosage: UNK UNK, PRN
     Route: 065
  2. PARACETAMOL [Concomitant]
     Active Substance: ACETAMINOPHEN
     Indication: PRODUCT USED FOR UNKNOWN INDICATION
     Dosage: 1 DF, PRN (UPON NEED)
     Route: 048
  3. DELTACORTENE [Concomitant]
     Active Substance: PREDNISONE
     Indication: ARTHRALGIA
     Dosage: 2 DF, UNK
     Route: 065
  4. DICLOFENAC [Concomitant]
     Active Substance: DICLOFENAC
     Indication: PRODUCT USED FOR UNKNOWN INDICATION
     Dosage: IN EVENING
     Route: 065
  5. COSENTYX [Suspect]
     Active Substance: SECUKINUMAB
     Indication: AXIAL SPONDYLOARTHRITIS
     Dosage: 150 MG, QW
     Route: 058
     Dates: start: 20170510, end: 20170530
  6. DIBASE [Concomitant]
     Active Substance: CHOLECALCIFEROL
     Indication: PRODUCT USED FOR UNKNOWN INDICATION
     Dosage: 30 DRP, QW
     Route: 065

REACTIONS (7)
  - Pain in extremity [Unknown]
  - Paraesthesia [Unknown]
  - Back pain [Unknown]
  - Pyrexia [Unknown]
  - Prostatitis [Unknown]
  - Intervertebral discitis [Unknown]
  - Arthropod bite [Unknown]

NARRATIVE: CASE EVENT DATE: 201705
